FAERS Safety Report 16030284 (Version 1)
Quarter: 2019Q1

REPORT INFORMATION
  Report Type: Spontaneous
  Country: CZ (occurrence: CZ)
  Receive Date: 20190304
  Receipt Date: 20190304
  Transmission Date: 20190418
  Serious: Yes (Disabling, Other)
  Sender: FDA-Public Use
  Company Number: CZ-PFIZER INC-2019088914

PATIENT
  Sex: Female

DRUGS (4)
  1. MEDROL [Suspect]
     Active Substance: METHYLPREDNISOLONE
     Indication: PAIN
     Dosage: DOSAGE 1-0-0 (ONE IN THE MORNING)
     Route: 048
     Dates: start: 201809, end: 20181217
  2. PANTOPRAZOL ZENTIVA [Concomitant]
     Dosage: 1-0-0 (ONE IN THE MORNING)
  3. MEDROL [Suspect]
     Active Substance: METHYLPREDNISOLONE
     Dosage: 4 MG, 1X/DAY
     Route: 048
     Dates: start: 20181224, end: 20190122
  4. LETROX [Concomitant]
     Active Substance: LEVOTHYROXINE SODIUM
     Dosage: DOSAGE 1-0-0 (ONE IN THE MORNING)

REACTIONS (5)
  - Asthenia [Recovered/Resolved]
  - Hot flush [Recovered/Resolved]
  - Myalgia [Unknown]
  - Headache [Recovered/Resolved]
  - Back pain [Recovered/Resolved]

NARRATIVE: CASE EVENT DATE: 201809
